FAERS Safety Report 24799598 (Version 8)
Quarter: 2025Q3

REPORT INFORMATION
  Report Type: Spontaneous
  Country: US (occurrence: US)
  Receive Date: 20250102
  Receipt Date: 20250704
  Transmission Date: 20251020
  Serious: Yes (Hospitalization, Other)
  Sender: NOVARTIS
  Company Number: US-002147023-NVSC2024US244566

PATIENT
  Sex: Female
  Weight: 85.261 kg

DRUGS (28)
  1. FEMARA [Suspect]
     Active Substance: LETROZOLE
     Indication: Product used for unknown indication
     Dosage: 1 DOSAGE FORM, TIW (1 TAB FOR 3 DAYS EVERY WEEK FOR A QUANTITY OF 9/3 DAYS OF A WEEK OF A 21 DAYS CY
     Route: 065
     Dates: end: 20240816
  2. FEMARA [Suspect]
     Active Substance: LETROZOLE
     Route: 065
     Dates: end: 20240913
  3. FEMARA [Suspect]
     Active Substance: LETROZOLE
     Route: 048
     Dates: end: 20241011
  4. FEMARA [Suspect]
     Active Substance: LETROZOLE
     Route: 065
     Dates: end: 20241013
  5. FEMARA [Suspect]
     Active Substance: LETROZOLE
     Route: 065
     Dates: end: 202410
  6. ANASTROZOLE [Suspect]
     Active Substance: ANASTROZOLE
     Indication: Product used for unknown indication
     Dosage: 1 MG, QD
     Route: 048
     Dates: start: 20240512
  7. IBRANCE [Suspect]
     Active Substance: PALBOCICLIB
     Indication: Product used for unknown indication
     Route: 065
     Dates: start: 20230917, end: 20231007
  8. IBRANCE [Suspect]
     Active Substance: PALBOCICLIB
     Dosage: 100 MG, QD
     Route: 065
     Dates: start: 20230917, end: 20231007
  9. IBRANCE [Suspect]
     Active Substance: PALBOCICLIB
     Dosage: 100 MG, QD
     Route: 065
     Dates: start: 20231203, end: 20231214
  10. IBRANCE [Suspect]
     Active Substance: PALBOCICLIB
     Route: 065
     Dates: start: 20240107, end: 20240913
  11. IBRANCE [Suspect]
     Active Substance: PALBOCICLIB
     Route: 065
     Dates: start: 20240107, end: 20240913
  12. IBRANCE [Suspect]
     Active Substance: PALBOCICLIB
     Route: 065
     Dates: start: 20241013
  13. IBRANCE [Suspect]
     Active Substance: PALBOCICLIB
     Route: 065
  14. DENOSUMAB [Suspect]
     Active Substance: DENOSUMAB
     Indication: Product used for unknown indication
     Route: 065
     Dates: start: 20241011, end: 20241013
  15. DENOSUMAB [Suspect]
     Active Substance: DENOSUMAB
     Route: 065
     Dates: start: 20241011, end: 20241013
  16. VERAPAMIL [Concomitant]
     Active Substance: VERAPAMIL HYDROCHLORIDE
     Indication: Product used for unknown indication
     Dosage: 180 MG, QD, EXTENDED RELEASE
     Route: 048
  17. XARELTO [Concomitant]
     Active Substance: RIVAROXABAN
     Indication: Product used for unknown indication
     Dosage: 20 MG, QD
     Route: 048
  18. FUROSEMIDE [Concomitant]
     Active Substance: FUROSEMIDE
     Indication: Product used for unknown indication
     Dosage: 20 MG, QD
     Route: 048
  19. VITAMIN B COMPLEX [Concomitant]
     Active Substance: CYANOCOBALAMIN\DEXPANTHENOL\NIACINAMIDE\PYRIDOXINE HYDROCHLORIDE\RIBOFLAVIN 5^-PHOSPHATE SODIUM\THIA
     Indication: Product used for unknown indication
     Dosage: UNK, QD
     Route: 048
  20. ALLOPURINOL [Concomitant]
     Active Substance: ALLOPURINOL
     Indication: Product used for unknown indication
     Dosage: 300 MG, QD
     Route: 048
  21. LEVOTHYROXINE [Concomitant]
     Active Substance: LEVOTHYROXINE
     Indication: Product used for unknown indication
     Dosage: 50 UG, QD (ORAL 50 MCG TABLET 1 CAPSULE ORALLY EVERY DAY)
     Route: 048
  22. LEVOTHYROXINE [Concomitant]
     Active Substance: LEVOTHYROXINE
     Route: 048
  23. VITAMINS [Concomitant]
     Active Substance: VITAMINS
     Indication: Product used for unknown indication
     Dosage: UNK, QD
     Route: 048
  24. PALBOCICLIB [Concomitant]
     Active Substance: PALBOCICLIB
     Indication: Product used for unknown indication
     Dosage: 75 MG, TIW (75 MG 3 DAYS A WEEK OF A 21 DAYS CYCLE)
     Route: 048
  25. PALBOCICLIB [Concomitant]
     Active Substance: PALBOCICLIB
     Route: 065
     Dates: start: 20230917, end: 20231007
  26. PALBOCICLIB [Concomitant]
     Active Substance: PALBOCICLIB
     Dosage: 100 MG, QD
     Route: 065
     Dates: start: 20231203, end: 20231214
  27. PALBOCICLIB [Concomitant]
     Active Substance: PALBOCICLIB
     Route: 048
     Dates: start: 20240107, end: 20240913
  28. PALBOCICLIB [Concomitant]
     Active Substance: PALBOCICLIB
     Dosage: UNK, TIW
     Route: 065
     Dates: start: 20241013

REACTIONS (26)
  - Alopecia [Unknown]
  - Immunodeficiency [Unknown]
  - White blood cell count decreased [Unknown]
  - Invasive breast carcinoma [Unknown]
  - Adenocarcinoma gastric [Unknown]
  - Neutropenia [Unknown]
  - Metastases to peritoneum [Unknown]
  - Metastases to bone [Unknown]
  - Metastases to spine [Unknown]
  - Pain in extremity [Recovering/Resolving]
  - Constipation [Unknown]
  - Breast mass [Not Recovered/Not Resolved]
  - Nasopharyngitis [Unknown]
  - Pain [Unknown]
  - Cough [Unknown]
  - Stomatitis [Unknown]
  - Myalgia [Unknown]
  - Arthralgia [Unknown]
  - Retracted nipple [Unknown]
  - Hypoaesthesia [Unknown]
  - Dyspnoea [Unknown]
  - Fatigue [Unknown]
  - Depression [Unknown]
  - Anxiety [Unknown]
  - Blood pressure increased [Unknown]
  - Memory impairment [Unknown]
